FAERS Safety Report 6587916-5 (Version None)
Quarter: 2010Q1

REPORT INFORMATION
  Report Type: 
  Country: None (occurrence: None)
  Receive Date: 20100217
  Receipt Date: 20100217
  Transmission Date: 20100710
  Serious: Yes (Hospitalization)
  Sender: FDA-Public Use
  Company Number: None

PATIENT
  Age: 52 Year
  Sex: Female
  Weight: 108.9 kg

DRUGS (1)
  1. PSEUDOEPHEDRINE [Suspect]
     Indication: SINUSITIS
     Dosage: 1-2 MG PER HOUR PO
     Route: 048
     Dates: start: 20091020, end: 20091028

REACTIONS (3)
  - HEART RATE INCREASED [None]
  - HYPERTENSION [None]
  - TACHYCARDIA [None]
